FAERS Safety Report 6183260-9 (Version None)
Quarter: 2009Q2

REPORT INFORMATION
  Report Type: 
  Country: None (occurrence: None)
  Receive Date: 20090507
  Receipt Date: 20090430
  Transmission Date: 20091009
  Serious: Yes (Death, Other)
  Sender: FDA-Public Use
  Company Number: ES-AMGEN-UK213379

PATIENT
  Age: 60 Year
  Sex: Male

DRUGS (1)
  1. ARANESP [Suspect]
     Indication: RENAL FAILURE CHRONIC
     Route: 058

REACTIONS (5)
  - COLON CANCER [None]
  - DEATH [None]
  - HAEMOGLOBIN DECREASED [None]
  - PEMPHIGOID [None]
  - REFUSAL OF TREATMENT BY PATIENT [None]
